FAERS Safety Report 8851433 (Version 1)
Quarter: 2012Q4

REPORT INFORMATION
  Report Type: 
  Country: US (occurrence: US)
  Receive Date: 20121021
  Receipt Date: 20121021
  Transmission Date: 20130627
  Serious: No
  Sender: FDA-Public Use
  Company Number: US-009507513-1210USA001636

PATIENT
  Sex: Male
  Weight: 117.91 kg

DRUGS (3)
  1. VICTRELIS [Suspect]
     Indication: HEPATITIS C
     Dosage: 4 DF, tid
     Dates: start: 20120314, end: 20120928
  2. RIBAVIRIN [Suspect]
     Dosage: 6 DF, qd
  3. PEGASYS [Suspect]
     Indication: HEPATITIS C
     Dosage: 180 MCG/0.5ML PFS injection
     Route: 058

REACTIONS (2)
  - Hepatitis C [Unknown]
  - White blood cell count decreased [Unknown]
